FAERS Safety Report 9772391 (Version 1)
Quarter: 2013Q4

REPORT INFORMATION
  Report Type: Spontaneous
  Country: US (occurrence: None)
  Receive Date: 20131218
  Receipt Date: 20131218
  Transmission Date: 20140711
  Serious: Yes (Other)
  Sender: FDA-Public Use
  Company Number: None

PATIENT
  Age: 76 Year
  Sex: Female

DRUGS (2)
  1. JAKAFI [Suspect]
     Indication: MYELOFIBROSIS
     Route: 048
     Dates: start: 20131112
  2. EXJADE [Suspect]
     Indication: BLOOD IRON INCREASED
     Route: 048
     Dates: start: 20120214

REACTIONS (2)
  - Haemoglobin decreased [None]
  - Haematocrit decreased [None]
